FAERS Safety Report 10217145 (Version 2)
Quarter: 2014Q2

REPORT INFORMATION
  Report Type: Report from Study
  Country: BR (occurrence: BR)
  Receive Date: 20140604
  Receipt Date: 20140604
  Transmission Date: 20141212
  Serious: Yes (Hospitalization, Other)
  Sender: FDA-Public Use
  Company Number: PHHY2014BR037895

PATIENT
  Age: 82 Year
  Sex: Female
  Weight: 42 kg

DRUGS (5)
  1. EXELON PATCH [Suspect]
     Indication: DEMENTIA ALZHEIMER^S TYPE
     Dosage: 4.6 MG, DAILY (9 MG/5CM2)
     Route: 062
     Dates: start: 201402
  2. CALCIUM [Concomitant]
     Indication: OSTEOPOROSIS
     Dosage: 2 DF, DAILY
  3. MENELAT [Concomitant]
     Indication: SLEEP DISORDER
     Dosage: 1 DF, DAILY
     Dates: start: 201401
  4. AXONIUM [Concomitant]
     Indication: SLEEP DISORDER
     Dosage: 1 DF, DAILY
     Dates: start: 201401
  5. AXONIUM [Concomitant]
     Indication: HEAD DISCOMFORT

REACTIONS (6)
  - Urinary tract infection [Recovering/Resolving]
  - Pyrexia [Recovered/Resolved]
  - Tremor [Recovered/Resolved]
  - Hepatic function abnormal [Recovering/Resolving]
  - Abasia [Recovered/Resolved]
  - Abnormal behaviour [Not Recovered/Not Resolved]
